FAERS Safety Report 6170858-7 (Version None)
Quarter: 2009Q2

REPORT INFORMATION
  Report Type: 
  Country: None (occurrence: None)
  Receive Date: 20090427
  Receipt Date: 20090421
  Transmission Date: 20091009
  Serious: Yes (Hospitalization)
  Sender: FDA-Public Use
  Company Number: 2009SP008455

PATIENT
  Age: 59 Year
  Sex: Female
  Weight: 97.9 kg

DRUGS (2)
  1. TEMODAR [Suspect]
     Indication: GLIOBLASTOMA MULTIFORME
     Dosage: 205 MG; PO
     Route: 048
     Dates: start: 20080605
  2. TEMODAR [Suspect]
     Indication: GLIOBLASTOMA MULTIFORME
     Dosage: 205 MG; PO
     Route: 048
     Dates: start: 20090327

REACTIONS (3)
  - PERIPHERAL MOTOR NEUROPATHY [None]
  - PLATELET COUNT INCREASED [None]
  - URINARY TRACT INFECTION [None]
